FAERS Safety Report 5098187-3 (Version None)
Quarter: 2006Q3

REPORT INFORMATION
  Report Type: 
  Country: None (occurrence: None)
  Receive Date: 20060906
  Receipt Date: 20060522
  Transmission Date: 20061208
  Serious: No
  Sender: FDA-Public Use
  Company Number: US-GLAXOSMITHKLINE-A0606518A

PATIENT
  Age: 68 Year
  Sex: Female

DRUGS (5)
  1. REQUIP [Suspect]
     Indication: RESTLESS LEGS SYNDROME
     Dosage: .25MG SINGLE DOSE
     Route: 048
     Dates: start: 20060520, end: 20060520
  2. MIRAPEX [Suspect]
     Indication: RESTLESS LEGS SYNDROME
     Dosage: .25MG PER DAY
  3. MIRAPEX [Concomitant]
  4. TOPROL-XL [Concomitant]
  5. EVISTA [Concomitant]

REACTIONS (3)
  - DYSKINESIA [None]
  - MUSCLE SPASMS [None]
  - RESTLESSNESS [None]
